FAERS Safety Report 5039157-0 (Version None)
Quarter: 2006Q2

REPORT INFORMATION
  Report Type: 
  Country: None (occurrence: None)
  Receive Date: 20060629
  Receipt Date: 20060628
  Transmission Date: 20061013
  Serious: Yes (Hospitalization)
  Sender: FDA-Public Use
  Company Number: FR-GLAXOSMITHKLINE-B0429081A

PATIENT
  Age: 24 Year
  Sex: Female
  Weight: 70 kg

DRUGS (5)
  1. AUGMENTIN '125' [Suspect]
     Indication: NASOPHARYNGITIS
     Dosage: 9G PER DAY
     Route: 048
     Dates: start: 20060607, end: 20060609
  2. ADVIL [Suspect]
     Indication: NASOPHARYNGITIS
     Dosage: 200MG UNKNOWN
     Route: 048
     Dates: start: 20060607, end: 20060609
  3. PARACETAMOL [Suspect]
     Indication: NASOPHARYNGITIS
     Dosage: 3G PER DAY
     Route: 048
     Dates: start: 20060607, end: 20060609
  4. ACETAMINOPHEN [Concomitant]
     Route: 042
     Dates: start: 20060609, end: 20060612
  5. HARMONET [Concomitant]
     Dosage: 1TAB PER DAY
     Route: 048

REACTIONS (5)
  - HEPATIC ENZYME INCREASED [None]
  - LEUKOPENIA [None]
  - PYREXIA [None]
  - THROMBOCYTOPENIA [None]
  - VOMITING [None]
